FAERS Safety Report 17099438 (Version 1)
Quarter: 2019Q4

REPORT INFORMATION
  Report Type: Spontaneous
  Country: SE (occurrence: SE)
  Receive Date: 20191202
  Receipt Date: 20191202
  Transmission Date: 20200122
  Serious: Yes (Death)
  Sender: FDA-Public Use
  Company Number: SE-MYLANLABS-2019M1115615

PATIENT
  Age: 65 Year
  Sex: Female

DRUGS (10)
  1. ALVEDON [Concomitant]
     Active Substance: ACETAMINOPHEN
  2. SIMIDON [Concomitant]
     Active Substance: SIMVASTATIN
  3. FURIX [Concomitant]
  4. BISOPROLOL [Concomitant]
     Active Substance: BISOPROLOL
  5. ENALAPRIL [Interacting]
     Active Substance: ENALAPRIL
     Indication: PRODUCT USED FOR UNKNOWN INDICATION
     Dosage: 1 DOSAGE FORM, QD
     Route: 048
     Dates: start: 20091104
  6. METFORMIN [Suspect]
     Active Substance: METFORMIN HYDROCHLORIDE
     Indication: PRODUCT USED FOR UNKNOWN INDICATION
     Dosage: 3 DOSAGE FORM, QD
     Route: 048
  7. OZEMPIC [Interacting]
     Active Substance: SEMAGLUTIDE
     Indication: PRODUCT USED FOR UNKNOWN INDICATION
     Dosage: 0.25 MILLIGRAM, QW
     Route: 058
     Dates: start: 201904, end: 20190515
  8. OZEMPIC [Interacting]
     Active Substance: SEMAGLUTIDE
     Dosage: 0.5 MILLIGRAM, QW
     Dates: start: 20190516
  9. MULTAQ [Interacting]
     Active Substance: DRONEDARONE
     Indication: PRODUCT USED FOR UNKNOWN INDICATION
     Dosage: 2 DOSAGE FORM, QD
     Route: 048
     Dates: start: 20110420
  10. WARAN [Concomitant]
     Active Substance: WARFARIN SODIUM

REACTIONS (3)
  - Drug interaction [Fatal]
  - Renal failure [Fatal]
  - Lactic acidosis [Fatal]

NARRATIVE: CASE EVENT DATE: 201906
